FAERS Safety Report 12935041 (Version 3)
Quarter: 2017Q1

REPORT INFORMATION
  Report Type: Spontaneous
  Country: US (occurrence: US)
  Receive Date: 20161113
  Receipt Date: 20170124
  Transmission Date: 20170428
  Serious: Yes (Death, Other)
  Sender: FDA-Public Use
  Company Number: US-AMGEN-USASP2016158779

PATIENT
  Sex: Male

DRUGS (1)
  1. NEUPOGEN [Suspect]
     Active Substance: FILGRASTIM
     Indication: PRODUCT USED FOR UNKNOWN INDICATION
     Dosage: UNK
     Route: 065

REACTIONS (6)
  - Acute myeloid leukaemia [Unknown]
  - Splenomegaly [Unknown]
  - Death [Fatal]
  - Pneumothorax [Unknown]
  - Blast cell count increased [Unknown]
  - Respiratory distress [Unknown]

NARRATIVE: CASE EVENT DATE: 2016
